FAERS Safety Report 6145360-9 (Version None)
Quarter: 2009Q2

REPORT INFORMATION
  Report Type: 
  Country: None (occurrence: None)
  Receive Date: 20090402
  Receipt Date: 20090319
  Transmission Date: 20091009
  Serious: Yes (Death)
  Sender: FDA-Public Use
  Company Number: KV200900410

PATIENT
  Age: 78 Year
  Sex: Female

DRUGS (1)
  1. MORPHINE SULFATE [Suspect]
     Indication: PAIN
     Dosage: 15 MG, EVERY 4 HOURS PRN, ORAL
     Route: 048
     Dates: start: 20050503

REACTIONS (5)
  - ABDOMINAL PAIN UPPER [None]
  - CARDIAC DISORDER [None]
  - NEOPLASM MALIGNANT [None]
  - PRODUCT QUALITY ISSUE [None]
  - RESPIRATORY DISORDER [None]
